FAERS Safety Report 7245935-X (Version None)
Quarter: 2011Q1

REPORT INFORMATION
  Report Type: 
  Country: None (occurrence: None)
  Receive Date: 20110126
  Receipt Date: 20110119
  Transmission Date: 20110831
  Serious: Yes (Hospitalization)
  Sender: FDA-Public Use
  Company Number: PHHO2010US14378

PATIENT
  Sex: Male
  Weight: 93 kg

DRUGS (5)
  1. AFINITOR [Suspect]
     Indication: MANTLE CELL LYMPHOMA REFRACTORY
     Dosage: 10 MG, QD
     Route: 048
     Dates: start: 20100720, end: 20100917
  2. AVODART [Concomitant]
     Indication: HYPERTENSION
  3. CARVEDILOL [Suspect]
     Indication: HYPERTENSION
     Dosage: 6.25 MG, BID
     Route: 048
     Dates: start: 20071221
  4. ASPIRIN [Concomitant]
     Indication: CHRONIC OBSTRUCTIVE PULMONARY DISEASE
  5. COREG [Suspect]
     Indication: CHRONIC OBSTRUCTIVE PULMONARY DISEASE
     Dosage: UNK
     Dates: start: 20070221

REACTIONS (3)
  - PNEUMONIA [None]
  - PYREXIA [None]
  - HYPOTENSION [None]
